FAERS Safety Report 19454381 (Version 1)
Quarter: 2021Q2

REPORT INFORMATION
  Report Type: Report from Study
  Country: CA (occurrence: CA)
  Receive Date: 20210623
  Receipt Date: 20210623
  Transmission Date: 20210717
  Serious: Yes (Life-Threatening, Other)
  Sender: FDA-Public Use
  Company Number: CA-SAMSUNG BIOEPIS-SB-2021-08154

PATIENT
  Age: 56 Year
  Sex: Female

DRUGS (1)
  1. BRENZYS [Suspect]
     Active Substance: ETANERCEPT
     Indication: ANKYLOSING SPONDYLITIS
     Route: 065
     Dates: start: 20191209

REACTIONS (2)
  - Back pain [Not Recovered/Not Resolved]
  - Anal cancer stage IV [Unknown]
